FAERS Safety Report 5963107-3 (Version None)
Quarter: 2008Q4

REPORT INFORMATION
  Report Type: 
  Country: None (occurrence: None)
  Receive Date: 20081124
  Receipt Date: 20081111
  Transmission Date: 20090506
  Serious: Yes (Hospitalization)
  Sender: FDA-Public Use
  Company Number: US-SANOFI-SYNTHELABO-A03200804468

PATIENT
  Age: 888 Month
  Sex: Male

DRUGS (7)
  1. AVODART [Suspect]
     Indication: BENIGN PROSTATIC HYPERPLASIA
     Route: 048
     Dates: start: 20070101, end: 20080101
  2. UROXATRAL [Suspect]
     Indication: PROSTATOMEGALY
     Route: 048
     Dates: start: 20060101, end: 20080401
  3. UROXATRAL [Suspect]
     Indication: HYPERTONIC BLADDER
     Route: 048
     Dates: start: 20060101, end: 20080401
  4. UROXATRAL [Suspect]
     Indication: URINE FLOW DECREASED
     Route: 048
     Dates: start: 20060101, end: 20080401
  5. UROXATRAL [Suspect]
     Route: 048
     Dates: start: 20060201, end: 20060701
  6. UROXATRAL [Suspect]
     Route: 048
     Dates: start: 20060201, end: 20060701
  7. UROXATRAL [Suspect]
     Route: 048
     Dates: start: 20060201, end: 20060701

REACTIONS (4)
  - ATRIAL FLUTTER [None]
  - DIZZINESS [None]
  - PROSTATIC SPECIFIC ANTIGEN INCREASED [None]
  - TACHYCARDIA [None]
